FAERS Safety Report 21706857 (Version 1)
Quarter: 2022Q4

REPORT INFORMATION
  Report Type: Spontaneous
  Country: CA (occurrence: CA)
  Receive Date: 20221209
  Receipt Date: 20221209
  Transmission Date: 20230113
  Serious: Yes (Death, Hospitalization, Disabling, Other)
  Sender: FDA-Public Use
  Company Number: CA-BAXTER-2022BAX025832

PATIENT
  Age: 80 Year
  Sex: Male
  Weight: 69 kg

DRUGS (305)
  1. ACETAMINOPHEN [Suspect]
     Active Substance: ACETAMINOPHEN
     Indication: Product used for unknown indication
     Dosage: 5 ML, 1 EVERY 1 DAY,
     Route: 042
  2. ACETAMINOPHEN [Suspect]
     Active Substance: ACETAMINOPHEN
     Indication: Off label use
  3. ACETAMINOPHEN [Suspect]
     Active Substance: ACETAMINOPHEN
     Indication: Analgesic therapy
  4. MANNITOL [Suspect]
     Active Substance: MANNITOL
     Indication: Product used for unknown indication
     Dosage: DOSAGE FORM: NOT SPECIFIED 12.5 GRAM
     Route: 042
  5. MANNITOL [Suspect]
     Active Substance: MANNITOL
     Indication: Nutritional supplementation
  6. CEFTRIAXONE [Suspect]
     Active Substance: CEFTRIAXONE
     Indication: Off label use
     Dosage: 2.0 MILLIGRAM
     Route: 065
  7. CEFTRIAXONE [Suspect]
     Active Substance: CEFTRIAXONE
     Indication: Bacterial infection
     Dosage: 2.0 GRAM 1 EVERY 1 DAYS
     Route: 042
  8. NOREPINEPHRINE BITARTRATE [Suspect]
     Active Substance: NOREPINEPHRINE BITARTRATE
     Indication: Stress
     Dosage: DOSAGE FORM: NOT SPECIFIED, ONCE
     Route: 042
  9. NOREPINEPHRINE BITARTRATE [Suspect]
     Active Substance: NOREPINEPHRINE BITARTRATE
     Indication: Product used for unknown indication
     Dosage: DOSAGE FORM: LIQUID INTRAVENOUS, 1 DOSAGE FORM, 1 EVERY 1 DAYS
     Route: 065
  10. NOREPINEPHRINE BITARTRATE [Suspect]
     Active Substance: NOREPINEPHRINE BITARTRATE
     Indication: Off label use
     Dosage: 3 MILLIGRAM, ONCE EVERY DAY, DOSAGE FORM: LIQUID INTRAVENOUS
     Route: 048
  11. NOREPINEPHRINE BITARTRATE [Suspect]
     Active Substance: NOREPINEPHRINE BITARTRATE
     Indication: Intentional product misuse
     Dosage: 1 DF, DOSAGE FORM: LIQUID INTRAVENOUS
     Route: 048
  12. POTASSIUM CHLORIDE [Suspect]
     Active Substance: POTASSIUM CHLORIDE
     Indication: Product used for unknown indication
     Dosage: DOSAGE FORM: NOT SPECIFIED
     Route: 065
  13. POTASSIUM CHLORIDE [Suspect]
     Active Substance: POTASSIUM CHLORIDE
     Indication: Constipation
  14. ANTICOAGULANT SODIUM CITRATE [Suspect]
     Active Substance: SODIUM CITRATE
     Indication: Thrombosis
     Dosage: 2.5 ML, DOSAGE FORM: LIQUID INTRAVENOUS
     Route: 065
  15. DEXTROSE [Suspect]
     Active Substance: DEXTROSE
     Indication: Nutritional supplementation
     Dosage: DOSAGE FORM: SOLUTION FOR INJECTION, 12.5 GRAM
     Route: 042
  16. DEXTROSE\SODIUM CHLORIDE [Suspect]
     Active Substance: DEXTROSE\SODIUM CHLORIDE
     Indication: Product used for unknown indication
     Dosage: 12.5 GRAM 1 EVERY 1 DAYS
     Route: 042
  17. DEXTROSE\SODIUM CHLORIDE [Suspect]
     Active Substance: DEXTROSE\SODIUM CHLORIDE
     Indication: Nutritional supplementation
     Dosage: 12.5 MILLIGRAM 1 EVERY 1 DAYS
     Route: 042
  18. HEPARIN SODIUM [Suspect]
     Active Substance: HEPARIN SODIUM
     Indication: Product used for unknown indication
     Dosage: DOSAGE FORM: SOLUTION INTRAVENOUS, 50.0 ML 1 EVERY 1 DAYS
     Route: 042
  19. HEPARIN SODIUM [Suspect]
     Active Substance: HEPARIN SODIUM
     Indication: Off label use
     Dosage: DOSAGE FORM: SOLUTION INTRAVENOUS 250.0 ML
     Route: 042
  20. HEPARIN SODIUM [Suspect]
     Active Substance: HEPARIN SODIUM
     Indication: Intentional product misuse
     Dosage: DOSAGE FORM: SOLUTION INTRAVENOUS 50.0 ML
     Route: 017
  21. HEPARIN SODIUM [Suspect]
     Active Substance: HEPARIN SODIUM
     Indication: Anticoagulant therapy
  22. METRONIDAZOLE [Suspect]
     Active Substance: METRONIDAZOLE
     Indication: Product used for unknown indication
     Dosage: DOSAGE FORM: NOT SPECIFIED 550.0 MILLIGRAM 1 EVERY 8 HOURS
     Route: 048
  23. METRONIDAZOLE [Suspect]
     Active Substance: METRONIDAZOLE
     Indication: Off label use
     Dosage: DOSAGE FORM: NOT SPECIFIED 1500.0 MILLIGRAM 1 EVERY 1 DAYS
     Route: 048
  24. METRONIDAZOLE [Suspect]
     Active Substance: METRONIDAZOLE
     Indication: Bacterial infection
     Dosage: DOSAGE FORM: NOT SPECIFIED 500.0 MILLIGRAM 1 EVERY 1 DAYS
     Route: 048
  25. ACETAMINOPHEN [Suspect]
     Active Substance: ACETAMINOPHEN
     Indication: Product used for unknown indication
     Dosage: 650 GRAM, ONCE EVERY 1 DAY, DOSAGE FORM: NOT SPECIFIED
     Route: 048
  26. ACETAMINOPHEN [Suspect]
     Active Substance: ACETAMINOPHEN
     Indication: Analgesic therapy
     Dosage: 650 GRAM, ONCE EVERY 1 DAY, DOSAGE FORM: NOT SPECIFIED
     Route: 048
  27. ACETAMINOPHEN [Suspect]
     Active Substance: ACETAMINOPHEN
     Indication: Off label use
  28. ALLOPURINOL [Suspect]
     Active Substance: ALLOPURINOL
     Indication: Off label use
     Dosage: 1.0 DOSAGE FORMS ONCE EVERY 1 DAY, DOSAGE FORM: TABLETS
     Route: 048
  29. ALLOPURINOL [Suspect]
     Active Substance: ALLOPURINOL
     Indication: Intentional product misuse
     Dosage: 100.0 MILLIGRAM ONCE EVERY 1 DAY DOSAGE FORM: TABLETS
     Route: 048
  30. ALLOPURINOL [Suspect]
     Active Substance: ALLOPURINOL
     Indication: Product used for unknown indication
  31. ALLOPURINOL [Suspect]
     Active Substance: ALLOPURINOL
     Indication: Blood uric acid increased
  32. ALUMINUM HYDROXIDE\DIMETHICONE\MAGNESIUM HYDROXIDE [Suspect]
     Active Substance: ALUMINUM HYDROXIDE\DIMETHICONE\MAGNESIUM HYDROXIDE
     Indication: Constipation
     Dosage: 133 ML
     Route: 054
  33. AMINOBENZOIC ACID [Suspect]
     Active Substance: AMINOBENZOIC ACID
     Indication: Product used for unknown indication
     Dosage: 12.5 MILLIGRAM
     Route: 065
  34. AMIODARONE [Suspect]
     Active Substance: AMIODARONE
     Indication: Ventricular fibrillation
     Dosage: 150.0 MILLIGRAM ONCE EVERY 1 DAY, DOSAGE FORM: NOT SPECIFIED
     Route: 042
  35. AMIODARONE [Suspect]
     Active Substance: AMIODARONE
     Indication: Product used for unknown indication
  36. AMIODARONE [Suspect]
     Active Substance: AMIODARONE
     Indication: Intentional product misuse
  37. AMIODARONE [Suspect]
     Active Substance: AMIODARONE
     Indication: Off label use
  38. AMIODARONE [Suspect]
     Active Substance: AMIODARONE
     Indication: Drug therapy
  39. AMIODARONE HYDROCHLORIDE [Suspect]
     Active Substance: AMIODARONE HYDROCHLORIDE
     Indication: Ventricular fibrillation
     Dosage: 150.0 MILLIGRAM ONCE EVERY 1 DAY DOSAGE FORM: LIQUID INTRAVENOUS
     Route: 042
  40. AMIODARONE HYDROCHLORIDE [Suspect]
     Active Substance: AMIODARONE HYDROCHLORIDE
     Indication: Drug therapy
  41. AMIODARONE HYDROCHLORIDE [Suspect]
     Active Substance: AMIODARONE HYDROCHLORIDE
     Indication: Intentional product misuse
  42. AMIODARONE HYDROCHLORIDE [Suspect]
     Active Substance: AMIODARONE HYDROCHLORIDE
     Indication: Off label use
  43. AMIODARONE HYDROCHLORIDE [Suspect]
     Active Substance: AMIODARONE HYDROCHLORIDE
     Indication: Product used for unknown indication
  44. ARANESP [Suspect]
     Active Substance: DARBEPOETIN ALFA
     Indication: Anaemia
     Dosage: 10.0 MILLIGRAM CYCLICAL, DOSAGE FORM: SOLUTION INTRAVENOUS
     Route: 042
  45. ARANESP [Suspect]
     Active Substance: DARBEPOETIN ALFA
     Indication: Product used for unknown indication
     Dosage: 10.0 MILLIGRAM 1 EVERY 2 WEEKS, DOSAGE FORM: SOLUTION INTRAVENOUS
     Route: 042
  46. ARANESP [Suspect]
     Active Substance: DARBEPOETIN ALFA
     Dosage: 0.2 MICROGRAM 1 EVERY 2 WEEKS, DOSAGE FORM: SOLUTION INTRAVENOUS
     Route: 065
  47. ARANESP [Suspect]
     Active Substance: DARBEPOETIN ALFA
     Dosage: 0.71 MICROGRAM 1 EVERY 2 WEEKS, DOSAGE FORM: SOLUTION INTRAVENOUS
     Route: 065
  48. ARANESP [Suspect]
     Active Substance: DARBEPOETIN ALFA
     Dosage: 0.71 MICROGRAM 1 EVERY 1 DAYS, DOSAGE FORM: SOLUTION INTRAVENOUS
     Route: 042
  49. ARANESP [Suspect]
     Active Substance: DARBEPOETIN ALFA
     Dosage: 20.0 MILLIGRAM 1 EVERY 1 WEEKS, DOSAGE FORM: SOLUTION INTRAVENOUS
     Route: 042
  50. ARANESP [Suspect]
     Active Substance: DARBEPOETIN ALFA
     Dosage: DOSAGE FORM: SOLUTION INTRAVENOUS
     Route: 017
  51. ARANESP [Suspect]
     Active Substance: DARBEPOETIN ALFA
     Dosage: 10.0 MILLIGRAM 1 EVERY 1 WEEKS, DOSAGE FORM: SOLUTION INTRAVENOUS
     Route: 042
  52. ARANESP [Suspect]
     Active Substance: DARBEPOETIN ALFA
     Dosage: 1.42 MICROGRAM 1 EVERY 1 WEEKS, DOSAGE FORM: SOLUTION INTRAVENOUS
     Route: 042
  53. ARANESP [Suspect]
     Active Substance: DARBEPOETIN ALFA
     Dosage: 0.71 MICROGRAM, ONCE EVERY 1 WEEK, DOSAGE FORM SOLUTION INTRAVENOUS
     Route: 042
  54. VITAMIN C [Suspect]
     Active Substance: ASCORBIC ACID
     Indication: Vitamin supplementation
     Dosage: 17.0 GRAM 1 EVERY 1 DAYS DOSAGE FORM: NOT SPECIFIED
     Route: 048
  55. VITAMIN C [Suspect]
     Active Substance: ASCORBIC ACID
     Indication: Constipation
  56. VITAMIN C [Suspect]
     Active Substance: ASCORBIC ACID
     Indication: Product used for unknown indication
  57. ATROVENT [Suspect]
     Active Substance: IPRATROPIUM BROMIDE
     Indication: Somnolence
     Dosage: 4 EVERY 1 DAYS, DOSAGE FORM: NOT SPECIFIED
     Route: 065
  58. ATROVENT [Suspect]
     Active Substance: IPRATROPIUM BROMIDE
     Indication: Sleep disorder therapy
     Dosage: 1.0 DOSAGE FORM 1 EVERY 6 HOURS , DOSAGE FORM: NOT SPECIFIED
     Route: 050
  59. ATROVENT [Suspect]
     Active Substance: IPRATROPIUM BROMIDE
     Indication: Product used for unknown indication
     Dosage: 1 DOSAGE FORM, 1 EVERY 1 DAYS, DOSAGE FORM: NOT SPECIFIED
     Route: 065
  60. ATROVENT [Suspect]
     Active Substance: IPRATROPIUM BROMIDE
     Indication: Off label use
     Dosage: 1 EVERY 4 DAYS, DOSAGE FORM: NOT SPECIFIED
     Route: 050
  61. ATROVENT [Suspect]
     Active Substance: IPRATROPIUM BROMIDE
     Indication: Dyspnoea
     Dosage: 1.0 UNKNOWN 1 EVERY 4 DAYS, DOSAGE FORM: NOT SPECIFIED
  62. ATROVENT [Suspect]
     Active Substance: IPRATROPIUM BROMIDE
     Dosage: 1 EVERY 6 HOURS, DOSAGE FORM: NOT SPECIFIED
     Route: 050
  63. ATROVENT [Suspect]
     Active Substance: IPRATROPIUM BROMIDE
     Dosage: 1 EVERY 1 DAYS, DOSAGE FORM: NOT SPECIFIED
     Route: 050
  64. ATROVENT [Suspect]
     Active Substance: IPRATROPIUM BROMIDE
     Dosage: 1.0 DOSAGE FORM 1 EVERY 8 HOURS, DOSAGE FORM: NOT SPECIFIED
     Route: 050
  65. FLUTICASONE FUROATE [Suspect]
     Active Substance: FLUTICASONE FUROATE
     Indication: Blood phosphorus increased
     Dosage: DOSAGE FORM: SPRAY, METERED DOSE
     Route: 048
  66. FLUTICASONE FUROATE [Suspect]
     Active Substance: FLUTICASONE FUROATE
     Indication: Product used for unknown indication
  67. FLUTICASONE FUROATE [Suspect]
     Active Substance: FLUTICASONE FUROATE
     Indication: Intentional product misuse
  68. FLUTICASONE FUROATE [Suspect]
     Active Substance: FLUTICASONE FUROATE
     Indication: Nutritional supplementation
  69. BETA CAROTENE [Suspect]
     Active Substance: BETA CAROTENE
     Indication: Nutritional supplementation
     Dosage: 12.5 IU  AS REQUIRED
     Route: 042
  70. BETAMETHASONE [Suspect]
     Active Substance: BETAMETHASONE
     Indication: Swelling
     Dosage: 10.0 DOSAGE FORMS, DOSAGE FORM: OINTMENT TOPICAL
     Route: 065
  71. BETAMETHASONE [Suspect]
     Active Substance: BETAMETHASONE
     Indication: Product used for unknown indication
     Dosage: 10.0 MILLIGRAM, DOSAGE FORM: OINTMENT TOPICAL
     Route: 061
  72. BETAMETHASONE [Suspect]
     Active Substance: BETAMETHASONE
     Indication: Off label use
     Dosage: 1.0 DOSAGE FORMS, DOSAGE FORM: OINTMENT TOPICAL
     Route: 061
  73. BETAMETHASONE [Suspect]
     Active Substance: BETAMETHASONE
     Dosage: 1 EVERY 1 DAYS, DOSAGE FORM: OINTMENT TOPICAL
     Route: 061
  74. BETAMETHASONE DIPROPIONATE [Suspect]
     Active Substance: BETAMETHASONE DIPROPIONATE
     Indication: Swelling
     Dosage: ONCE EVERY 1 DAYS DOSAGE FORM: NOT SPECIFIED
     Route: 061
  75. BISACODYL [Suspect]
     Active Substance: BISACODYL
     Indication: Ventricular fibrillation
     Dosage: 10.0 MILLIGRAM DOSAGE FORM: NOT SPECIFIED
     Route: 042
  76. BISACODYL [Suspect]
     Active Substance: BISACODYL
     Indication: Product used for unknown indication
     Dosage: 10.0 MILLIGRAM, 1 EVERY 1 DAY, DOSAGE FORM: NOT SPECIFIED
     Route: 054
  77. BISACODYL [Suspect]
     Active Substance: BISACODYL
     Indication: Off label use
  78. BISACODYL [Suspect]
     Active Substance: BISACODYL
     Indication: Dyspnoea
  79. BISACODYL [Suspect]
     Active Substance: BISACODYL
     Indication: Drug therapy
  80. BISACODYL [Suspect]
     Active Substance: BISACODYL
     Indication: Constipation
  81. BISMUTH SUBNITRATE [Suspect]
     Active Substance: BISMUTH SUBNITRATE
     Indication: Constipation
     Dosage: 133.0 ML AS REQUIRED, DOSAGE FORM: NOT SPECIFIED
     Route: 065
  82. UNSPECIFIED INGREDIENT [Suspect]
     Active Substance: UNSPECIFIED INGREDIENT
     Indication: Dyspnoea
     Dosage: 1.0 IU/KG
     Route: 065
  83. BUFEXAMAC\LIDOCAINE HYDROCHLORIDE [Suspect]
     Active Substance: BUFEXAMAC\LIDOCAINE HYDROCHLORIDE
     Indication: Constipation
     Dosage: 133.0 ML AS REQUIRED
     Route: 054
  84. CALCITRIOL [Suspect]
     Active Substance: CALCITRIOL
     Indication: Vitamin D
     Dosage: 500.0 MILLIGRAM 1 EVERY 8 HOURS, DOSAGE FORM: NOT SPECIFIED
     Route: 048
  85. CALCITRIOL [Suspect]
     Active Substance: CALCITRIOL
     Indication: Product used for unknown indication
     Dosage: 0.25 MICROGRAM 1 EVERY 1 DAYS, DOSAGE FORM: NOT SPECIFIED
     Route: 048
  86. CALCITRIOL [Suspect]
     Active Substance: CALCITRIOL
     Indication: Hypovitaminosis
  87. CALCIUM\VITAMIN D [Suspect]
     Active Substance: CALCIUM\VITAMIN D
     Indication: Product used for unknown indication
     Dosage: DOSAGE FORM: NOT SPECIFIED
     Route: 065
  88. CEFTRIAXONE [Suspect]
     Active Substance: CEFTRIAXONE
     Indication: Product used for unknown indication
     Dosage: 2.0 GRAM 1 EVERY 1 DAYS, DOSAGE FORM: POWDER FOR SOLUTION INTRAMUSCULAR
     Route: 042
  89. CEFTRIAXONE [Suspect]
     Active Substance: CEFTRIAXONE
     Indication: Off label use
  90. CEFTRIAXONE [Suspect]
     Active Substance: CEFTRIAXONE
     Indication: Bacterial infection
  91. CHLORAMPHENICOL [Suspect]
     Active Substance: CHLORAMPHENICOL
     Indication: Product used for unknown indication
     Dosage: DOSAGE FORM: NOT SPECIFIED
     Route: 065
  92. CHLORAMPHENICOL\HYDROCORTISONE ACETATE\METRONIDAZOLE\NATAMYCIN [Suspect]
     Active Substance: CHLORAMPHENICOL\HYDROCORTISONE ACETATE\METRONIDAZOLE\NATAMYCIN
     Indication: Bacterial infection
     Dosage: 500.0 MILLIGRAM 1 EVERY 8 HOURS, DOSAGE FORM: NOT SPECIFIED
     Route: 065
  93. CHLORAMPHENICOL\HYDROCORTISONE ACETATE\METRONIDAZOLE\NATAMYCIN [Suspect]
     Active Substance: CHLORAMPHENICOL\HYDROCORTISONE ACETATE\METRONIDAZOLE\NATAMYCIN
     Indication: Anaemia
     Dosage: 1500.0 MILLIGRAM, DOSAGE FORM: NOT SPECIFIED
     Route: 065
  94. COUMADIN [Suspect]
     Active Substance: WARFARIN SODIUM
     Indication: Thrombosis
     Dosage: 2.0 MILLIGRAM 1 EVERY 1 DAYS
     Route: 048
  95. COUMADIN [Suspect]
     Active Substance: WARFARIN SODIUM
     Dosage: 2.0 ML 1 EVERY 1 DAYS
     Route: 048
  96. COUMADIN [Suspect]
     Active Substance: WARFARIN SODIUM
     Dosage: 2.0 GRAM 1 EVERY 1 DAYS
     Route: 048
  97. DEXILANT [Suspect]
     Active Substance: DEXLANSOPRAZOLE
     Indication: Product used for unknown indication
     Dosage: DOSAGE FORM: CAPSULE, DELAYED RELEASE 60.0 MILLIGRAM 1 EVERY 1 DAYS
     Route: 065
  98. DEXILANT [Suspect]
     Active Substance: DEXLANSOPRAZOLE
     Dosage: DOSAGE FORM: CAPSULE, DELAYED RELEASE
     Route: 065
  99. CALCIUM CHLORIDE\DEXTROSE\POTASSIUM CHLORIDE\SODIUM CHLORIDE [Suspect]
     Active Substance: CALCIUM CHLORIDE\DEXTROSE\POTASSIUM CHLORIDE\SODIUM CHLORIDE
     Indication: Nutritional supplementation
     Route: 065
  100. DIPROSONE [Suspect]
     Active Substance: BETAMETHASONE DIPROPIONATE
     Indication: Swelling
     Dosage: DOSAGE FORM: NOT SPECIFIED 1 EVERY 1 DAYS
     Route: 061
  101. DIPYRONE [Suspect]
     Active Substance: DIPYRONE
     Indication: Vitamin supplementation
     Dosage: DOSAGE FORM: SOLUTION INTRAMUSCULAR, 5.0 MILLIGRAM 1 EVERY 1 DAYS
     Route: 042
  102. DISTIGMINE BROMIDE [Suspect]
     Active Substance: DISTIGMINE BROMIDE
     Indication: Dyspnoea
     Dosage: 1.0 IU, 1 EVERY 1 DAYS
     Route: 048
  103. .ALPHA.-TOCOPHEROL, DL-\FISH OIL [Suspect]
     Active Substance: .ALPHA.-TOCOPHEROL, DL-\FISH OIL
     Indication: Nutritional supplementation
     Dosage: 12.5 GRAM
     Route: 042
  104. DOBUTAMINE HYDROCHLORIDE [Suspect]
     Active Substance: DOBUTAMINE HYDROCHLORIDE
     Indication: Cardiogenic shock
     Dosage: DOSAGE FORM: SOLUTION INTRAVENOUS
     Route: 042
  105. DOBUTAMINE HYDROCHLORIDE [Suspect]
     Active Substance: DOBUTAMINE HYDROCHLORIDE
     Indication: Product used for unknown indication
     Dosage: DOSAGE FORM: LIQUID INTRAVENOUS, 1 EVERY 1 DAYS
     Route: 042
  106. DOBUTAMINE HYDROCHLORIDE [Suspect]
     Active Substance: DOBUTAMINE HYDROCHLORIDE
     Indication: Off label use
  107. DOCUSATE SODIUM [Suspect]
     Active Substance: DOCUSATE SODIUM
     Indication: Product used for unknown indication
     Dosage: DOSAGE FORM: NOT SPECIFIED
     Route: 065
  108. DULCOLAX NOS [Suspect]
     Active Substance: BISACODYL OR DOCUSATE SODIUM
     Indication: Ventricular fibrillation
     Dosage: 10.0 MILLIGRAM 1 EVERY 1 DAYS DOSAGE FORM: NOT SPECIFIED
     Route: 054
  109. DULCOLAX NOS [Suspect]
     Active Substance: BISACODYL OR DOCUSATE SODIUM
     Indication: Drug therapy
  110. DULCOLAX NOS [Suspect]
     Active Substance: BISACODYL OR DOCUSATE SODIUM
     Indication: Constipation
  111. FERROUS SUCCINATE [Suspect]
     Active Substance: FERROUS SUCCINATE
     Indication: Iron deficiency
     Dosage: 1 EVERY 6 HOURS
     Route: 042
  112. DIETARY SUPPLEMENT [Suspect]
     Active Substance: DIETARY SUPPLEMENT
     Indication: Product used for unknown indication
     Dosage: DOSAGE FORM: POWDER, 5.0 MILLIGRAM 1 EVERY 1 DAYS
     Route: 065
  113. HERBALS\PLANTAGO OVATA SEED COAT [Suspect]
     Active Substance: HERBALS\PLANTAGO OVATA SEED COAT
     Indication: Product used for unknown indication
     Dosage: DOSAGE FORM: POWDER, 5.0 MILLIGRAM 1 EVERY 1 DAYS
     Route: 042
  114. HERBALS\PLANTAGO OVATA SEED COAT [Suspect]
     Active Substance: HERBALS\PLANTAGO OVATA SEED COAT
     Indication: Vitamin supplementation
  115. FLUTICASONE FUROATE\UMECLIDINIUM BROMIDE\VILANTEROL TRIFENATATE [Suspect]
     Active Substance: FLUTICASONE FUROATE\UMECLIDINIUM BROMIDE\VILANTEROL TRIFENATATE
     Indication: Blood phosphorus increased
     Dosage: 1 EVERY 1 DAYS
     Route: 065
  116. FLUTICASONE FUROATE\UMECLIDINIUM BROMIDE\VILANTEROL TRIFENATATE [Suspect]
     Active Substance: FLUTICASONE FUROATE\UMECLIDINIUM BROMIDE\VILANTEROL TRIFENATATE
     Indication: Product used for unknown indication
  117. FLUTICASONE FUROATE\UMECLIDINIUM BROMIDE\VILANTEROL TRIFENATATE [Suspect]
     Active Substance: FLUTICASONE FUROATE\UMECLIDINIUM BROMIDE\VILANTEROL TRIFENATATE
     Indication: Nutritional supplementation
  118. FLUTICASONE PROPIONATE\SALMETEROL XINAFOATE [Suspect]
     Active Substance: FLUTICASONE PROPIONATE\SALMETEROL XINAFOATE
     Indication: Dyspnoea
     Dosage: 1 IU, DOSAGE FORM: NOT SPECIFIED
     Route: 048
  119. FLUTICASONE FUROATE\VILANTEROL TRIFENATATE [Suspect]
     Active Substance: FLUTICASONE FUROATE\VILANTEROL TRIFENATATE
     Indication: Dyspnoea
     Dosage: 1 IU, 1 EVERY 1 DAYS
     Route: 065
  120. FLUTICASONE FUROATE\VILANTEROL TRIFENATATE [Suspect]
     Active Substance: FLUTICASONE FUROATE\VILANTEROL TRIFENATATE
     Indication: Blood phosphorus increased
     Dosage: UNK
     Route: 058
  121. FLUTICASONE FUROATE\VILANTEROL TRIFENATATE [Suspect]
     Active Substance: FLUTICASONE FUROATE\VILANTEROL TRIFENATATE
     Indication: Product used for unknown indication
     Dosage: 1 IU, 1 EVERY 1 DAYS
     Route: 048
  122. FLUTICASONE FUROATE\VILANTEROL TRIFENATATE [Suspect]
     Active Substance: FLUTICASONE FUROATE\VILANTEROL TRIFENATATE
     Indication: Nutritional supplementation
  123. FOSRENOL [Suspect]
     Active Substance: LANTHANUM CARBONATE
     Indication: Blood phosphorus increased
     Dosage: DOSAGE FORM: TABLET (CHEWABLE) 500.0 MILLIGRAM 1 EVERY 1 DAYS
     Route: 048
  124. FRAGMIN [Suspect]
     Active Substance: DALTEPARIN SODIUM
     Indication: Thrombosis
     Dosage: DOSAGE FORM: SOLUTION INTRAVENOUS, 12.5 MG
     Route: 048
  125. FRAGMIN [Suspect]
     Active Substance: DALTEPARIN SODIUM
     Indication: Pulmonary embolism
     Dosage: DOSAGE FORM: SOLUTION INTRAVENOUS 2.5 ML
     Route: 065
  126. FRAGMIN [Suspect]
     Active Substance: DALTEPARIN SODIUM
     Indication: Product used for unknown indication
  127. FURAZOLIDONE [Suspect]
     Active Substance: FURAZOLIDONE
     Indication: Product used for unknown indication
     Dosage: DOSAGE FORM: NOT SPECIFIED,12.5 MILLIGRAM
     Route: 042
  128. FENOTEROL HYDROBROMIDE\IPRATROPIUM BROMIDE [Suspect]
     Active Substance: FENOTEROL HYDROBROMIDE\IPRATROPIUM BROMIDE
     Indication: Dyspnoea
     Dosage: 3.0 DOSAGE FORMS 1 EVERY 1 DAYS
     Route: 065
  129. FENOTEROL HYDROBROMIDE\IPRATROPIUM BROMIDE [Suspect]
     Active Substance: FENOTEROL HYDROBROMIDE\IPRATROPIUM BROMIDE
     Dosage: 1.0 DOSAGE FORMS 2 EVERY 1 DAYS
     Route: 065
  130. FENOTEROL HYDROBROMIDE\IPRATROPIUM BROMIDE [Suspect]
     Active Substance: FENOTEROL HYDROBROMIDE\IPRATROPIUM BROMIDE
     Dosage: 4.0 IU 1 EVERY 1 DAYS
     Route: 050
  131. GABAPENTIN [Suspect]
     Active Substance: GABAPENTIN
     Indication: Product used for unknown indication
     Dosage: DOSAGE FORM: NOT SPECIFIED 100.0 MILLIGRAM 1 EVERY 1 DAYS
     Route: 048
  132. GABAPENTIN [Suspect]
     Active Substance: GABAPENTIN
     Indication: Off label use
  133. GABAPENTIN [Suspect]
     Active Substance: GABAPENTIN
     Indication: Neuralgia
  134. GABAPENTIN [Suspect]
     Active Substance: GABAPENTIN
     Indication: Intentional product misuse
  135. GABAPENTIN [Suspect]
     Active Substance: GABAPENTIN
     Indication: Bacterial infection
  136. DEXTROSE\HEPARIN SODIUM [Suspect]
     Active Substance: DEXTROSE\HEPARIN SODIUM
     Indication: Anticoagulant therapy
     Dosage: 50.0 ML
     Route: 042
  137. DEXTROSE\HEPARIN SODIUM [Suspect]
     Active Substance: DEXTROSE\HEPARIN SODIUM
     Dosage: 50.0 ML 1 EVERY 1 DAYS
     Route: 065
  138. DEXTROSE\HEPARIN SODIUM [Suspect]
     Active Substance: DEXTROSE\HEPARIN SODIUM
     Dosage: DOSAGE FORM: SOLUTION INTRAVENOUS 50.0 ML
     Route: 042
  139. DEXTROSE\HEPARIN SODIUM [Suspect]
     Active Substance: DEXTROSE\HEPARIN SODIUM
     Dosage: DOSAGE FORM: SOLUTION INTRAVENOUS 250.0 ML 1 EVERY 1 DAYS
     Route: 042
  140. HERBALS\PAULLINIA CUPANA SEED [Suspect]
     Active Substance: HERBALS\PAULLINIA CUPANA SEED
     Indication: Product used for unknown indication
     Dosage: DOSAGE FORM: NOT SPECIFIED 12.5 MILLIGRAM
     Route: 042
  141. HERBALS\PAULLINIA CUPANA SEED [Suspect]
     Active Substance: HERBALS\PAULLINIA CUPANA SEED
     Indication: Nutritional supplementation
     Dosage: DOSAGE FORM: NOT SPECIFIED 17 MILLIGRAM
     Route: 042
  142. HEPARIN CALCIUM [Suspect]
     Active Substance: HEPARIN CALCIUM
     Indication: Anticoagulant therapy
     Dosage: DOSAGE FORM: NOT SPECIFIED 50.0 ML AS REQUIRED
     Route: 042
  143. GLYCOSAMINOGLYCANS [Suspect]
     Active Substance: GLYCOSAMINOGLYCANS
     Indication: Anticoagulant therapy
     Dosage: 50.0 ML 1 EVERY 1 DAYS
     Route: 042
  144. GLYCOSAMINOGLYCANS [Suspect]
     Active Substance: GLYCOSAMINOGLYCANS
     Dosage: 250.0 ML 1 EVERY 1 DAYS
     Route: 042
  145. HORSE CHESTNUT [Suspect]
     Active Substance: HORSE CHESTNUT
     Indication: Product used for unknown indication
     Dosage: DOSAGE FORM: NOT SPECIFIED
     Route: 065
  146. HYDROCORTISONE [Suspect]
     Active Substance: HYDROCORTISONE
     Indication: Angioedema
     Dosage: ROUTE: PARENTERAL, 100 MG, DOSAGE FORM: NOT SPECIFIED
     Route: 050
  147. HYDROMORPHONE [Suspect]
     Active Substance: HYDROMORPHONE
     Indication: Product used for unknown indication
     Dosage: DOSAGE FORM: TABLETS 24.0 MILLIGRAM 4 EVERY 1 DAYS
     Route: 058
  148. HYDROMORPHONE [Suspect]
     Active Substance: HYDROMORPHONE
     Indication: Off label use
     Dosage: DOSAGE FORM: TABLETS, 6.0 MILLIGRAM 1 EVERY 4 DAYS
     Route: 058
  149. HYDROMORPHONE [Suspect]
     Active Substance: HYDROMORPHONE
     Indication: Intentional product misuse
     Dosage: DOSAGE FORM: TABLETS, 6.0 MILLIGRAM 6 EVERY 1 DAYS
     Route: 058
  150. HYDROMORPHONE [Suspect]
     Active Substance: HYDROMORPHONE
     Indication: Analgesic therapy
     Dosage: DOSAGE FORM: TABLETS, 6.0 MILLIGRAM 1 EVERY 5 HOURS
     Route: 058
  151. HYDROMORPHONE [Suspect]
     Active Substance: HYDROMORPHONE
     Dosage: DOSAGE FORM: TABLETS, 24.0 MILLIGRAM 1 EVERY 6 HOURS
     Route: 058
  152. HYDROMORPHONE [Suspect]
     Active Substance: HYDROMORPHONE
     Dosage: DOSAGE FORM: TABLETS, 1.0 MILLIGRAM 1 EVERY 4 DAYS
     Route: 058
  153. HYDROMORPHONE [Suspect]
     Active Substance: HYDROMORPHONE
     Dosage: DOSAGE FORM: TABLETS, 4.0 MILLIGRAM 1 EVERY 4 HOURS
     Route: 058
  154. HYDROMORPHONE [Suspect]
     Active Substance: HYDROMORPHONE
     Dosage: DOSAGE FORM: TABLETS, 1.0 MILLIGRAM 1 EVERY 4 DAYS
     Route: 058
  155. HYDROMORPHONE [Suspect]
     Active Substance: HYDROMORPHONE
     Dosage: DOSAGE FORM: TABLETS, 24.0 MILLIGRAM 1 EVERY 4 HOURS
     Route: 058
  156. HYDROMORPHONE HYDROCHLORIDE [Suspect]
     Active Substance: HYDROMORPHONE HYDROCHLORIDE
     Indication: Product used for unknown indication
     Dosage: DOSAGE FORM: SOLUTION INTRAMUSCULAR 1.0 MILLIGRAM 1 EVERY 4 HOURS
     Route: 058
  157. HYDROMORPHONE HYDROCHLORIDE [Suspect]
     Active Substance: HYDROMORPHONE HYDROCHLORIDE
     Indication: Off label use
     Dosage: DOSAGE FORM: SOLUTION INTRAMUSCULAR 1 MILLIGRAM 1 EVERY 1 DAYS
     Route: 058
  158. HYDROMORPHONE HYDROCHLORIDE [Suspect]
     Active Substance: HYDROMORPHONE HYDROCHLORIDE
     Indication: Analgesic therapy
     Dosage: DOSAGE FORM: SOLUTION INTRAMUSCULAR 17 MILLIGRAM 1 EVERY 1 DAYS
     Route: 058
  159. HYDROMORPHONE HYDROCHLORIDE [Suspect]
     Active Substance: HYDROMORPHONE HYDROCHLORIDE
     Dosage: DOSAGE FORM: SOLUTION INTRAMUSCULAR 1.0 MILLIGRAM 1 EVERY 6 DAYS
     Route: 058
  160. HYDROMORPHONE HYDROCHLORIDE [Suspect]
     Active Substance: HYDROMORPHONE HYDROCHLORIDE
     Dosage: DOSAGE FORM: SOLUTION INTRAMUSCULAR 6 MILLIGRAM 1 EVERY 6 HOURS
     Route: 058
  161. HYDROMORPHONE HYDROCHLORIDE [Suspect]
     Active Substance: HYDROMORPHONE HYDROCHLORIDE
     Dosage: DOSAGE FORM: SOLUTION INTRAMUSCULAR 24.0 MILLIGRAM 1 EVERY 4 HOURS
     Route: 058
  162. HYDROMORPHONE HYDROCHLORIDE [Suspect]
     Active Substance: HYDROMORPHONE HYDROCHLORIDE
     Dosage: DOSAGE FORM: SOLUTION INTRAMUSCULAR 96.0 MILLIGRAM 1 EVERY 1 DAYS
     Route: 058
  163. HYDROMORPHONE HYDROCHLORIDE [Suspect]
     Active Substance: HYDROMORPHONE HYDROCHLORIDE
     Dosage: DOSAGE FORM: SOLUTION INTRAMUSCULAR 1 ML 1 EVERY 4 HOURS
     Route: 058
  164. INSULIN PORK\INSULIN PURIFIED PORK [Suspect]
     Active Substance: INSULIN PORK\INSULIN PURIFIED PORK
     Indication: Diabetes mellitus
     Route: 065
  165. IPRATROPIUM [Suspect]
     Active Substance: IPRATROPIUM
     Indication: Sleep disorder therapy
     Dosage: DOSAGE FORM: NOT SPECIFIED 1.0 DOSAGE FORMS 4 EVERY 1 DAYS
     Route: 065
  166. IPRATROPIUM [Suspect]
     Active Substance: IPRATROPIUM
     Indication: Intentional product misuse
     Dosage: DOSAGE FORM: NOT SPECIFIED 1.0 DOSAGE FORMS 1 EVERY 1 DAYS
     Route: 065
  167. IPRATROPIUM [Suspect]
     Active Substance: IPRATROPIUM
     Indication: Dyspnoea
     Dosage: DOSAGE FORM: LIQUID INHALATION 1 EVERY 6 HOURS
     Route: 065
  168. IPRATROPIUM [Suspect]
     Active Substance: IPRATROPIUM
     Dosage: DOSAGE FORM: LIQUID INHALATION 1.0 DOSAGE FORMS 1 EVERY 8 HOURS
     Route: 050
  169. IPRATROPIUM [Suspect]
     Active Substance: IPRATROPIUM
     Dosage: DOSAGE FORM: LIQUID INHALATION 1.0 DOSAGE FORMS 1 EVERY 6 HOURS
     Route: 050
  170. IPRATROPIUM [Suspect]
     Active Substance: IPRATROPIUM
     Dosage: DOSAGE FORM: LIQUID INHALATION 1 EVERY 1 DAYS
     Route: 065
  171. IPRATROPIUM [Suspect]
     Active Substance: IPRATROPIUM
     Dosage: DOSAGE FORM: LIQUID INHALATION 4 EVERY 1 DAYS
     Route: 065
  172. IPRATROPIUM [Suspect]
     Active Substance: IPRATROPIUM
     Dosage: DOSAGE FORM: LIQUID INHALATION 4 EVERY 1 DAYS
     Route: 065
  173. IPRATROPIUM BROMIDE\XYLOMETAZOLINE HYDROCHLORIDE [Suspect]
     Active Substance: IPRATROPIUM BROMIDE\XYLOMETAZOLINE HYDROCHLORIDE
     Indication: Dyspnoea
     Dosage: 1 EVERY 1 DAYS
     Route: 050
  174. PANAX GINSENG WHOLE [Suspect]
     Active Substance: PANAX GINSENG WHOLE
     Indication: Nutritional supplementation
     Dosage: DOSAGE FORM: NOT SPECIFIED 12.0 MILLIGRAM
     Route: 065
  175. LANSOPRAZOLE [Suspect]
     Active Substance: LANSOPRAZOLE
     Indication: Product used for unknown indication
     Dosage: DOSAGE FORM: CAPSULE, DELAYED RELEASE 30.0 MILLIGRAM 1 EVERY 1 DAYS
     Route: 048
  176. LANSOPRAZOLE [Suspect]
     Active Substance: LANSOPRAZOLE
     Indication: Off label use
  177. LANSOPRAZOLE [Suspect]
     Active Substance: LANSOPRAZOLE
     Indication: Intentional product misuse
  178. LANSOPRAZOLE [Suspect]
     Active Substance: LANSOPRAZOLE
     Indication: Antacid therapy
  179. LANTHANUM CARBONATE [Suspect]
     Active Substance: LANTHANUM CARBONATE
     Indication: Product used for unknown indication
     Dosage: 550.0 MILLIGRAM 1 EVERY 1 DAYS
     Route: 048
  180. LANTHANUM CARBONATE [Suspect]
     Active Substance: LANTHANUM CARBONATE
     Indication: Off label use
     Dosage: 500.0 MILLIGRAM 1 EVERY 1 DAYS
     Route: 048
  181. LANTHANUM CARBONATE [Suspect]
     Active Substance: LANTHANUM CARBONATE
     Indication: Hyperphosphataemia
  182. LANTHANUM CARBONATE [Suspect]
     Active Substance: LANTHANUM CARBONATE
     Indication: Blood phosphorus increased
  183. LUTEIN [Suspect]
     Active Substance: LUTEIN
     Indication: Off label use
     Dosage: DOSAGE FORM: NOT SPECIFIED 12.5 GRAM
     Route: 042
  184. LUTEIN [Suspect]
     Active Substance: LUTEIN
     Indication: Nutritional supplementation
  185. LUTEIN [Suspect]
     Active Substance: LUTEIN
     Indication: Intentional product misuse
  186. LYPRESSIN [Suspect]
     Active Substance: LYPRESSIN
     Indication: Drug therapy
     Route: 042
  187. MAALOX ANTACID [Suspect]
     Active Substance: ALUMINUM HYDROXIDE\DIMETHICONE\MAGNESIUM HYDROXIDE
     Indication: Constipation
     Dosage: DOSAGE FORM: NOT SPECIFIED, 133.0 ML AS REQUIRED
     Route: 054
  188. POLYETHYLENE GLYCOL 3350 [Suspect]
     Active Substance: POLYETHYLENE GLYCOL 3350
     Indication: Product used for unknown indication
     Dosage: DOSAGE FORM: NOT SPECIFIED, 3.0 MILLIGRAM 1 EVERY 1 WEEKS
     Route: 048
  189. POLYETHYLENE GLYCOL 3350 [Suspect]
     Active Substance: POLYETHYLENE GLYCOL 3350
     Indication: Off label use
     Dosage: DOSAGE FORM: NOT SPECIFIED, 17.0 GRAM 1 EVERY 1 DAYS
     Route: 048
  190. POLYETHYLENE GLYCOL 3350 [Suspect]
     Active Substance: POLYETHYLENE GLYCOL 3350
     Indication: Constipation
     Dosage: DOSAGE FORM: NOT SPECIFIED, 17.0 MG, 1 EVERY 1 DAYS
     Route: 048
  191. POLYETHYLENE GLYCOL 3350\POTASSIUM CHLORIDE\SODIUM BICARBONATE\SODIUM [Suspect]
     Active Substance: POLYETHYLENE GLYCOL 3350\POTASSIUM CHLORIDE\SODIUM BICARBONATE\SODIUM CHLORIDE
     Indication: Constipation
     Dosage: 133.0 ML
     Route: 054
  192. MAGNESIUM CARBONATE [Suspect]
     Active Substance: MAGNESIUM CARBONATE
     Indication: Constipation
     Dosage: 133.0 ML AS REQUIRED, DOSAGE FORM: NOT SPECIFIED
     Route: 065
  193. MAGNESIUM OXIDE [Suspect]
     Active Substance: MAGNESIUM OXIDE
     Indication: Product used for unknown indication
     Dosage: DOSAGE FORM: NOT SPECIFIED 113 ML
     Route: 054
  194. MAGNESIUM OXIDE [Suspect]
     Active Substance: MAGNESIUM OXIDE
     Indication: Constipation
  195. MELATONIN [Suspect]
     Active Substance: MELATONIN
     Indication: Sleep disorder therapy
     Dosage: DOSAGE FORM: NOT SPECIFIED, 3.0 MILLIGRAM 1 EVERY 1 DAYS
     Route: 048
  196. MELATONIN [Suspect]
     Active Substance: MELATONIN
     Indication: Product used for unknown indication
  197. MELATONIN [Suspect]
     Active Substance: MELATONIN
     Indication: Off label use
  198. MELATONIN [Suspect]
     Active Substance: MELATONIN
     Indication: Intentional product misuse
  199. METAMIZOLE SODIUM [Suspect]
     Active Substance: METAMIZOLE SODIUM
     Indication: Intentional product misuse
     Dosage: 5.0 MILLIGRAM 1 EVERY 1 DAYS
     Route: 042
  200. METAMIZOLE SODIUM [Suspect]
     Active Substance: METAMIZOLE SODIUM
     Indication: Vitamin supplementation
  201. NOREPINEPHRINE BITARTRATE [Suspect]
     Active Substance: NOREPINEPHRINE BITARTRATE
     Indication: Stress
     Dosage: DOSAGE FORM: NOT SPECIFIED 1.0 DOSAGE FORMS 1 EVERY 1 DAYS
     Route: 048
  202. NOREPINEPHRINE BITARTRATE [Suspect]
     Active Substance: NOREPINEPHRINE BITARTRATE
     Indication: Product used for unknown indication
     Dosage: DOSAGE FORM: NOT SPECIFIED 3.0 MILLIGRAM 1 EVERY 1 DAYS
     Route: 048
  203. NOREPINEPHRINE BITARTRATE [Suspect]
     Active Substance: NOREPINEPHRINE BITARTRATE
     Indication: Off label use
  204. NOREPINEPHRINE BITARTRATE [Suspect]
     Active Substance: NOREPINEPHRINE BITARTRATE
     Indication: Intentional product misuse
  205. METAMIZOLE SODIUM [Suspect]
     Active Substance: METAMIZOLE SODIUM
     Indication: Vitamin supplementation
     Dosage: 5.0 MILLIGRAM
     Route: 042
  206. METAMIZOLE SODIUM [Suspect]
     Active Substance: METAMIZOLE SODIUM
     Indication: Intentional product misuse
  207. NOVORAPID [Suspect]
     Active Substance: INSULIN ASPART
     Indication: Product used for unknown indication
     Dosage: DOSAGE FORM: NOT SPECIFIED
     Route: 048
  208. NOVORAPID [Suspect]
     Active Substance: INSULIN ASPART
     Indication: Off label use
     Dosage: DOSAGE FORM: NOT SPECIFIED
     Route: 058
  209. NOVORAPID [Suspect]
     Active Substance: INSULIN ASPART
     Indication: Diabetes mellitus
  210. DIETARY SUPPLEMENT [Suspect]
     Active Substance: DIETARY SUPPLEMENT
     Indication: Vitamin supplementation
     Dosage: 5.0 MILLIGRAM 1 EVERY 1 DAYS
     Route: 042
  211. DIETARY SUPPLEMENT [Suspect]
     Active Substance: DIETARY SUPPLEMENT
     Indication: Intentional product misuse
     Dosage: 17 MILLIGRAM 1 EVERY 1 DAYS
     Route: 042
  212. ONDANSETRON [Suspect]
     Active Substance: ONDANSETRON
     Indication: Vomiting
     Dosage: DOSAGE FORM: NOT SPECIFIED 4.0 MILLIGRAM 1 EVERY 1 DAYS
     Route: 042
  213. ONDANSETRON [Suspect]
     Active Substance: ONDANSETRON
     Indication: Product used for unknown indication
     Dosage: DOSAGE FORM: NOT SPECIFIED 4.0 MILLIGRAM 1 EVERY 8 HOURS
     Route: 042
  214. ONDANSETRON [Suspect]
     Active Substance: ONDANSETRON
     Indication: Off label use
     Dosage: DOSAGE FORM: NOT SPECIFIED 12.0 MILLIGRAM 1 EVERY 3 DAYS
     Route: 042
  215. ONDANSETRON [Suspect]
     Active Substance: ONDANSETRON
     Indication: Nausea
     Dosage: DOSAGE FORM: NOT SPECIFIED 41.14 MILLIGRAM ONCE
     Route: 042
  216. ONDANSETRON [Suspect]
     Active Substance: ONDANSETRON
     Dosage: DOSAGE FORM: NOT SPECIFIED 12.0 MILLIGRAM 1 EVERY 8 HOURS
     Route: 042
  217. ONDANSETRON [Suspect]
     Active Substance: ONDANSETRON
     Dosage: DOSAGE FORM: NOT SPECIFIED 24.0 MILLIGRAM 1 EVERY 8 HOURS
     Route: 065
  218. ONDANSETRON [Suspect]
     Active Substance: ONDANSETRON
     Dosage: DOSAGE FORM: NOT SPECIFIED 1 DOSAGE FORMS 1 EVERY 8 HOURS
     Route: 042
  219. ONDANSETRON [Suspect]
     Active Substance: ONDANSETRON
     Dosage: DOSAGE FORM: NOT SPECIFIED 4.0 MILLIGRAM 1 EVERY 3 DAYS
     Route: 042
  220. ONDANSETRON [Suspect]
     Active Substance: ONDANSETRON
     Dosage: DOSAGE FORM: NOT SPECIFIED 40.0 MILLIGRAM 3 EVERY 1 DAYS
     Route: 042
  221. ONDANSETRON [Suspect]
     Active Substance: ONDANSETRON
     Dosage: DOSAGE FORM: NOT SPECIFIED 36.0 MILLIGRAM 3 EVERY 1 DAYS
     Route: 042
  222. ONDANSETRON [Suspect]
     Active Substance: ONDANSETRON
     Dosage: DOSAGE FORM: NOT SPECIFIED 8.0 MILLIGRAM 1 EVERY 8 HOURS
     Route: 042
  223. OTRIVIN [Suspect]
     Active Substance: XYLOMETAZOLINE
     Indication: Dyspnoea
     Dosage: DOSAGE FORM: NOT SPECIFIED
     Route: 065
  224. HERBALS [Suspect]
     Active Substance: HERBALS
     Indication: Nutritional supplementation
     Dosage: 12.5 MILLIGRAM
     Route: 042
  225. ACETAMINOPHEN [Suspect]
     Active Substance: ACETAMINOPHEN
     Indication: Analgesic therapy
     Dosage: 650.0 MILLIGRAM 1 EVERY 1 DAYS
     Route: 048
  226. ACETAMINOPHEN [Suspect]
     Active Substance: ACETAMINOPHEN
     Dosage: 5.0 ML 1 EVERY 1 DAYS
     Route: 042
  227. PHYTONADIONE [Suspect]
     Active Substance: PHYTONADIONE
     Indication: Vitamin supplementation
     Dosage: DOSAGE FORM: NOT SPECIFIED 5.0 MILLIGRAM AS REQUIRED
     Route: 065
  228. PHYTONADIONE [Suspect]
     Active Substance: PHYTONADIONE
     Indication: Off label use
     Dosage: DOSAGE FORM: NOT SPECIFIED 5.0 MILLIGRAM
     Route: 042
  229. PHYTONADIONE [Suspect]
     Active Substance: PHYTONADIONE
     Dosage: DOSAGE FORM: NOT SPECIFIED 5.0 MILLIGRAM 1 EVERY 1 DAYS
     Route: 017
  230. POTASSIUM CHLORATE [Suspect]
     Active Substance: POTASSIUM CHLORATE
     Indication: Product used for unknown indication
     Dosage: DOSAGE FORM: TABLETS ORAL 17.0 MILLIGRAM 1 EVERY 1 DAYS
     Route: 048
  231. POTASSIUM CHLORIDE [Suspect]
     Active Substance: POTASSIUM CHLORIDE
     Indication: Product used for unknown indication
     Dosage: DOSAGE FORM: NOT SPECIFIED 17.0 GM 1 EVERY 1 DAYS
     Route: 048
  232. POTASSIUM CHLORIDE [Suspect]
     Active Substance: POTASSIUM CHLORIDE
     Indication: Constipation
  233. PREVACID [Suspect]
     Active Substance: LANSOPRAZOLE
     Indication: Antacid therapy
     Dosage: DOSAGE FORM: TABLET (DELAYED-RELEASE), 30 MG
     Route: 065
  234. PROPYLENE GLYCOL [Suspect]
     Active Substance: PROPYLENE GLYCOL
     Indication: Product used for unknown indication
     Dosage: DOSAGE FORM: NOT SPECIFIED
     Route: 065
  235. PYRIDOXINE [Suspect]
     Active Substance: PYRIDOXINE
     Indication: Vitamin supplementation
     Dosage: DOSAGE FORM: TABLETS VIA 4.0 IU 1 EVERY 1 DAYS
     Route: 048
  236. PYRIDOXINE [Suspect]
     Active Substance: PYRIDOXINE
     Indication: Product used for unknown indication
     Dosage: DOSAGE FORM: TABLETS VIA 4.0 IU 1 EVERY 6 HOURS
     Route: 048
  237. PYRIDOXINE [Suspect]
     Active Substance: PYRIDOXINE
     Indication: Off label use
     Dosage: DOSAGE FORM: TABLETS VIA 1.0 IU 1 EVERY 1 DAYS
     Route: 048
  238. PYRIDOXINE [Suspect]
     Active Substance: PYRIDOXINE
     Indication: Constipation
     Dosage: DOSAGE FORM: TABLETS 10.0 MILLIGRAM
     Route: 048
  239. PYRIDOXINE [Suspect]
     Active Substance: PYRIDOXINE
     Indication: Analgesic therapy
  240. ALBUTEROL [Suspect]
     Active Substance: ALBUTEROL
     Indication: Chronic obstructive pulmonary disease
     Dosage: DOSAGE FORM: NOT SPECIFIED 4.0 DOSAGE FORMS 1 EVERY 1 DAYS
     Route: 065
  241. ALBUTEROL [Suspect]
     Active Substance: ALBUTEROL
     Dosage: DOSAGE FORM: NOT SPECIFIED 4.0 DOSAGE FORMS 1 EVERY 6 HOURS
     Route: 065
  242. ALBUTEROL [Suspect]
     Active Substance: ALBUTEROL
     Dosage: DOSAGE FORM: NOT SPECIFIED 1 EVERY 1 DAYS
     Route: 050
  243. ALBUTEROL\THEOPHYLLINE [Suspect]
     Active Substance: ALBUTEROL\THEOPHYLLINE
     Indication: Off label use
     Dosage: 4.0 DOSAGE FORMS 1 EVERY 6 HOURS
     Route: 065
  244. ALBUTEROL\THEOPHYLLINE [Suspect]
     Active Substance: ALBUTEROL\THEOPHYLLINE
     Indication: Intentional product misuse
     Dosage: 1 DOSAGE FORMS, 1 EVERY 6 HOURS
     Route: 065
  245. ALBUTEROL\THEOPHYLLINE [Suspect]
     Active Substance: ALBUTEROL\THEOPHYLLINE
     Indication: Chronic obstructive pulmonary disease
     Dosage: 4.0 DOSAGE FORMS 1 EVERY 1 DAYS
     Route: 065
  246. SIMVASTATIN [Suspect]
     Active Substance: SIMVASTATIN
     Indication: Vitamin supplementation
     Dosage: DOSAGE FORM: TABLETS 40.0 MILLIGRAM 1 EVERY 1 DAYS
     Route: 048
  247. SIMVASTATIN [Suspect]
     Active Substance: SIMVASTATIN
     Indication: Off label use
  248. SIMVASTATIN [Suspect]
     Active Substance: SIMVASTATIN
     Indication: Blood cholesterol increased
  249. SIMVASTATIN [Suspect]
     Active Substance: SIMVASTATIN
     Indication: Product used for unknown indication
  250. SODIUM FERRIC GLUCONATE COMPLEX [Suspect]
     Active Substance: SODIUM FERRIC GLUCONATE COMPLEX
     Indication: Iron deficiency
     Dosage: 133.0 ML
     Route: 042
  251. SODIUM FERRIC GLUCONATE COMPLEX [Suspect]
     Active Substance: SODIUM FERRIC GLUCONATE COMPLEX
     Dosage: 4.64 MILLIGRAM 1 EVERY 1 MONTHS
     Route: 042
  252. SODIUM FERRIC GLUCONATE COMPLEX [Suspect]
     Active Substance: SODIUM FERRIC GLUCONATE COMPLEX
     Dosage: 1.25 ML 1 EVERY 1 WEEKS
     Route: 042
  253. SODIUM FERRIC GLUCONATE COMPLEX [Suspect]
     Active Substance: SODIUM FERRIC GLUCONATE COMPLEX
     Dosage: 17.85 MILLIGRAM 1 EVERY 1 WEEKS
     Route: 042
  254. SODIUM FERRIC GLUCONATE COMPLEX [Suspect]
     Active Substance: SODIUM FERRIC GLUCONATE COMPLEX
     Dosage: 125.0 MILLIGRAM 1 EVERY 1 MONTHS
     Route: 042
  255. SODIUM CITRATE [Suspect]
     Active Substance: SODIUM CITRATE
     Indication: Thrombosis
     Dosage: DOSAGE FORM: NOT SPECIFIED 2.5 ML 1 EVERY 1 DAYS
     Route: 065
  256. SODIUM CITRATE [Suspect]
     Active Substance: SODIUM CITRATE
     Indication: Anticoagulant therapy
     Dosage: DOSAGE FORM: NOT SPECIFIED 2.5 MILLIGRAM 1 EVERY 1 DAYS
     Route: 065
  257. SODIUM CITRATE [Suspect]
     Active Substance: SODIUM CITRATE
     Dosage: DOSAGE FORM: NOT SPECIFIED 2.5 ML
     Route: 065
  258. SODIUM PHOSPHATE, MONOBASIC, ANHYDROUS [Suspect]
     Active Substance: SODIUM PHOSPHATE, MONOBASIC, ANHYDROUS
     Indication: Constipation
     Dosage: 133.0 ML AS REQUIRED
     Route: 054
  259. SODIUM PICOSULFATE [Suspect]
     Active Substance: SODIUM PICOSULFATE
     Indication: Product used for unknown indication
     Dosage: DOSAGE FORM: NOT SPECIFIED 10.0 MILLIGRAM 1 EVERY 1 DAYS
     Route: 054
  260. SODIUM PICOSULFATE [Suspect]
     Active Substance: SODIUM PICOSULFATE
     Indication: Constipation
     Dosage: DOSAGE FORM: NOT SPECIFIED 12.5 GRAM 1 EVERY 1 MONTHS
     Route: 054
  261. SODIUM PICOSULFATE [Suspect]
     Active Substance: SODIUM PICOSULFATE
     Indication: Analgesic therapy
  262. SUCROSE [Suspect]
     Active Substance: SUCROSE
     Indication: Iron deficiency
     Dosage: DOSAGE FORM: NOT SPECIFIED 12.0 MILLIGRAM 1 EVERY 1 MONTHS
     Route: 042
  263. SUCROSE [Suspect]
     Active Substance: SUCROSE
     Dosage: DOSAGE FORM: NOT SPECIFIED 125.0 MILLIGRAM 1 EVERY 4 WEEK
     Route: 065
  264. TAMIFLU [Suspect]
     Active Substance: OSELTAMIVIR PHOSPHATE
     Indication: Product used for unknown indication
     Dosage: 133.0 ML
     Route: 065
  265. TAMIFLU [Suspect]
     Active Substance: OSELTAMIVIR PHOSPHATE
     Indication: Chronic obstructive pulmonary disease
     Dosage: 12.5 MILLIGRAM, DOSAGE FORM: NOT SPECIFIED
     Route: 065
  266. TRELEGY ELLIPTA [Suspect]
     Active Substance: FLUTICASONE FUROATE\UMECLIDINIUM BROMIDE\VILANTEROL TRIFENATATE
     Indication: Product used for unknown indication
     Dosage: DOSAGE FORM: INHALATION POWDER
     Route: 065
  267. TRELEGY ELLIPTA [Suspect]
     Active Substance: FLUTICASONE FUROATE\UMECLIDINIUM BROMIDE\VILANTEROL TRIFENATATE
     Indication: Off label use
  268. TRELEGY ELLIPTA [Suspect]
     Active Substance: FLUTICASONE FUROATE\UMECLIDINIUM BROMIDE\VILANTEROL TRIFENATATE
     Indication: Intentional product misuse
  269. TRESIBA [Suspect]
     Active Substance: INSULIN DEGLUDEC
     Indication: Diabetes mellitus
     Dosage: DOSAGE FORM: SOLUTION SUBCUTANEOUS 1.0 DOSAGE FORMS 1 EVERY 1 DAYS
     Route: 058
  270. TRESIBA [Suspect]
     Active Substance: INSULIN DEGLUDEC
     Dosage: 1.0 DOSAGE FORMS 1 EVERY 1 DAYS
     Route: 065
  271. UMECLIDINIUM BROMIDE [Suspect]
     Active Substance: UMECLIDINIUM BROMIDE
     Indication: Dyspnoea
     Dosage: 1.0 IU 1 EVERY 1 DAYS
     Route: 048
  272. UMECLIDINIUM BROMIDE [Suspect]
     Active Substance: UMECLIDINIUM BROMIDE
     Indication: Product used for unknown indication
     Dosage: 1.0 DOSAGE FORMS
     Route: 048
  273. VASOPRESSIN [Suspect]
     Active Substance: VASOPRESSIN
     Indication: Product used for unknown indication
     Dosage: UNK
     Route: 017
  274. VASOPRESSIN [Suspect]
     Active Substance: VASOPRESSIN
     Indication: Drug therapy
     Dosage: 50.0 ML 1 EVERY 1 DAYS
     Route: 042
  275. VASOPRESSIN [Suspect]
     Active Substance: VASOPRESSIN
     Dosage: 250.0 ML 1 EVERY 1 DAYS
     Route: 042
  276. VILANTEROL TRIFENATATE [Suspect]
     Active Substance: VILANTEROL TRIFENATATE
     Indication: Dyspnoea
     Dosage: 1.0 IU 1 EVERY 1 DAYS
     Route: 048
  277. VITAMIN B6 [Suspect]
     Active Substance: PYRIDOXINE HYDROCHLORIDE
     Indication: Vitamin supplementation
     Dosage: DOSAGE FORM: NOT SPECIFIED
     Route: 048
  278. VITAMIN E [Suspect]
     Active Substance: .ALPHA.-TOCOPHEROL
     Indication: Vitamin supplementation
     Dosage: DOSAGE FORM: NOT SPECIFIED VIA 12.5 GRAM
     Route: 042
  279. VITAMIN K1 [Suspect]
     Active Substance: PHYTONADIONE
     Indication: Product used for unknown indication
     Dosage: DOSAGE FORM: NOT SPECIFIED 5.0 MILLIGRAM 1 EVERY 1 DAYS
     Route: 042
  280. VITAMIN K1 [Suspect]
     Active Substance: PHYTONADIONE
     Indication: Vitamin supplementation
  281. WARFARIN [Suspect]
     Active Substance: WARFARIN
     Indication: Thrombosis
     Dosage: DOSAGE FORM: TABLETS VIA 2.0 MG 1 EVERY 1 DAYS
     Route: 048
  282. WARFARIN [Suspect]
     Active Substance: WARFARIN
     Indication: Off label use
     Dosage: DOSAGE FORM: TABLETS VIA 2.0 GM 1 EVERY 1 DAYS
     Route: 048
  283. WARFARIN [Suspect]
     Active Substance: WARFARIN
     Indication: Intentional product misuse
     Dosage: DOSAGE FORM: TABLETS VIA 2.0 ML 1 EVERY 1 DAYS
     Route: 048
  284. XANTOFYL PALMITATE [Suspect]
     Active Substance: XANTOFYL PALMITATE
     Indication: Nutritional supplementation
     Dosage: 12.5 GRAM
     Route: 042
  285. XANTOFYL PALMITATE [Suspect]
     Active Substance: XANTOFYL PALMITATE
     Dosage: 5.0 MILLIGRAM 1 EVERY 1 DAYS
     Route: 042
  286. XYLOMETAZOLINE [Suspect]
     Active Substance: XYLOMETAZOLINE
     Indication: Dyspnoea
     Dosage: DOSAGE FORM: NOT SPECIFIED
     Route: 065
  287. ZOCOR [Suspect]
     Active Substance: SIMVASTATIN
     Indication: Blood cholesterol increased
     Dosage: DOSAGE FORM: TABLETS 40.0 MILLIGRAM 1 EVERY 1 DAYS
     Route: 048
  288. DEXTROSE [Suspect]
     Active Substance: DEXTROSE
     Indication: Nutritional supplementation
     Dosage: DOSAGE FORM: NOT SPECIFIED 12.5 MILLIGRAM 1 EVERY 1 DAYS
     Route: 042
  289. DEXTROSE [Suspect]
     Active Substance: DEXTROSE
     Indication: Product used for unknown indication
     Dosage: DOSAGE FORM: NOT SPECIFIED 12.0 GRAM 1 EVERY 1 DAYS
     Route: 042
  290. DEXTROSE [Suspect]
     Active Substance: DEXTROSE
     Indication: Off label use
     Dosage: DOSAGE FORM: NOT SPECIFIED 1.0 DOSAGE FORM, 1 EVERY 1 DAYS
     Route: 058
  291. DEXTROSE [Suspect]
     Active Substance: DEXTROSE
     Indication: Intentional product misuse
  292. BETA CAROTENE [Concomitant]
     Active Substance: BETA CAROTENE
     Route: 065
  293. CALCIUM GLUCONATE [Concomitant]
     Active Substance: CALCIUM GLUCONATE
     Dosage: DOSAGE FORM: NOT SPECIFIED
     Route: 065
  294. DISODIUM HYDROGEN CITRATE [Concomitant]
     Active Substance: DISODIUM HYDROGEN CITRATE
     Route: 065
  295. DOBUTAMINE HYDROCHLORIDE [Concomitant]
     Active Substance: DOBUTAMINE HYDROCHLORIDE
     Route: 065
  296. INSULIN NOS [Concomitant]
     Active Substance: INSULIN NOS
     Dosage: DOSAGE FORM: NOT SPECIFIED
     Route: 065
  297. POTASSIUM CHLORIDE\RIBOFLAVIN 5^-PHOSPHATE SODIUM [Concomitant]
     Active Substance: POTASSIUM CHLORIDE\RIBOFLAVIN 5^-PHOSPHATE SODIUM
     Route: 065
  298. RIBOFLAVIN 5^-PHOSPHATE [Concomitant]
     Active Substance: RIBOFLAVIN 5^-PHOSPHATE
     Dosage: DOSAGE FORM: CAPSULE
     Route: 065
  299. ALBUTEROL [Concomitant]
     Active Substance: ALBUTEROL
     Dosage: DOSAGE FORM: NOT SPECIFIED
     Route: 065
  300. VITAMIN D [Concomitant]
     Active Substance: VITAMIN D NOS
     Dosage: DOSAGE FORM: NOT SPECIFIED
     Route: 065
  301. VITAMIN C [Concomitant]
     Active Substance: ASCORBIC ACID
     Dosage: DOSAGE FORM: NOT SPECIFIED
     Route: 065
  302. VITAMIN D3 [Concomitant]
     Active Substance: CHOLECALCIFEROL
     Dosage: DOSAGE FORM: TABLETS, 1000 IU
     Route: 065
  303. SIMVASTATIN [Concomitant]
     Active Substance: SIMVASTATIN
     Route: 065
  304. SODIUM CITRATE [Concomitant]
     Active Substance: SODIUM CITRATE
     Route: 065
  305. AMLODIPINE [Concomitant]
     Active Substance: AMLODIPINE BESYLATE
     Route: 065

REACTIONS (23)
  - Abdominal distension [Fatal]
  - Abdominal pain [Fatal]
  - Appendicitis [Fatal]
  - Appendicolith [Fatal]
  - Ascites [Fatal]
  - Blood cholesterol increased [Fatal]
  - Blood phosphorus increased [Fatal]
  - Blood uric acid increased [Fatal]
  - Cardiogenic shock [Fatal]
  - Condition aggravated [Fatal]
  - Constipation [Fatal]
  - Dry mouth [Fatal]
  - General physical health deterioration [Fatal]
  - Hyponatraemia [Fatal]
  - Multiple organ dysfunction syndrome [Fatal]
  - Myasthenia gravis [Fatal]
  - Nausea [Fatal]
  - Off label use [Fatal]
  - Sepsis [Fatal]
  - Somnolence [Fatal]
  - Stress [Fatal]
  - Ventricular fibrillation [Fatal]
  - Vomiting [Fatal]
